FAERS Safety Report 23981214 (Version 1)
Quarter: 2024Q2

REPORT INFORMATION
  Report Type: Spontaneous
  Country: US (occurrence: None)
  Receive Date: 20240614
  Receipt Date: 20240614
  Transmission Date: 20240716
  Serious: No
  Sender: FDA-Public Use
  Company Number: None

PATIENT
  Age: 45 Year
  Sex: Female

DRUGS (1)
  1. AMBRISENTAN [Suspect]
     Active Substance: AMBRISENTAN
     Indication: Pulmonary arterial hypertension
     Dosage: 10 MG DAILY ORAL
     Route: 048

REACTIONS (17)
  - Productive cough [None]
  - Dyspnoea [None]
  - Weight decreased [None]
  - Nausea [None]
  - Decreased appetite [None]
  - Fatigue [None]
  - Pericardial effusion [None]
  - Fluid retention [None]
  - Syncope [None]
  - Neuropathy peripheral [None]
  - Fall [None]
  - Barrett^s oesophagus [None]
  - Foot fracture [None]
  - Dizziness [None]
  - Chest pain [None]
  - Anxiety [None]
  - Systemic lupus erythematosus [None]

NARRATIVE: CASE EVENT DATE: 20240614
